FAERS Safety Report 18129587 (Version 1)
Quarter: 2020Q3

REPORT INFORMATION
  Report Type: Spontaneous
  Country: US (occurrence: US)
  Receive Date: 20200810
  Receipt Date: 20200810
  Transmission Date: 20201103
  Serious: No
  Sender: FDA-Public Use
  Company Number: US-PERRIGO-19US007798

PATIENT
  Age: 70 Year
  Sex: Female
  Weight: 58.05 kg

DRUGS (1)
  1. LORATADINE. [Suspect]
     Active Substance: LORATADINE
     Indication: HYPERSENSITIVITY
     Dosage: 10 MG, TWICE
     Route: 048
     Dates: start: 20190625, end: 20190625

REACTIONS (3)
  - Extra dose administered [Recovered/Resolved]
  - Expired product administered [Recovered/Resolved]
  - Tension headache [Not Recovered/Not Resolved]

NARRATIVE: CASE EVENT DATE: 20190625
